FAERS Safety Report 4929224-1 (Version None)
Quarter: 2006Q1

REPORT INFORMATION
  Report Type: 
  Country: None (occurrence: None)
  Receive Date: 20060301
  Receipt Date: 20050311
  Transmission Date: 20060701
  Serious: Yes (Hospitalization, Other)
  Sender: FDA-Public Use
  Company Number: FR-BRISTOL-MYERS SQUIBB COMPANY-12925558

PATIENT
  Age: 63 Year
  Sex: Male

DRUGS (4)
  1. QUESTRAN [Suspect]
     Indication: HYPERCHOLESTEROLAEMIA
     Route: 048
  2. ALDACTAZINE [Concomitant]
     Indication: HYPERTENSION
  3. LOXEN [Concomitant]
     Indication: HYPERTENSION
  4. ZESTRIL [Concomitant]
     Indication: HYPERTENSION

REACTIONS (4)
  - ALANINE AMINOTRANSFERASE INCREASED [None]
  - ASPARTATE AMINOTRANSFERASE INCREASED [None]
  - BLOOD CREATINE PHOSPHOKINASE INCREASED [None]
  - PROSTATE CANCER [None]
